FAERS Safety Report 14779070 (Version 5)
Quarter: 2020Q4

REPORT INFORMATION
  Report Type: Report from Study
  Country: US (occurrence: US)
  Receive Date: 20180419
  Receipt Date: 20201002
  Transmission Date: 20210113
  Serious: Yes (Other)
  Sender: FDA-Public Use
  Company Number: PHEH2018US014241

PATIENT
  Sex: Female

DRUGS (3)
  1. GILENYA [Suspect]
     Active Substance: FINGOLIMOD HYDROCHLORIDE
     Dosage: 0.5 MG, QD
     Route: 048
  2. GILENYA [Suspect]
     Active Substance: FINGOLIMOD HYDROCHLORIDE
     Dosage: 0.5 MG, QD
     Route: 048
  3. GILENYA [Suspect]
     Active Substance: FINGOLIMOD HYDROCHLORIDE
     Indication: MULTIPLE SCLEROSIS
     Dosage: 0.5 MG, QD
     Route: 048
     Dates: start: 20180312

REACTIONS (14)
  - Crying [Unknown]
  - Fall [Not Recovered/Not Resolved]
  - Fear of falling [Unknown]
  - Muscular weakness [Unknown]
  - Balance disorder [Unknown]
  - Contusion [Unknown]
  - Gait disturbance [Unknown]
  - Eye swelling [Unknown]
  - Scratch [Unknown]
  - Pain [Not Recovered/Not Resolved]
  - Neuropathy peripheral [Unknown]
  - Pain in extremity [Unknown]
  - Ligament sprain [Unknown]
  - Burning sensation [Unknown]
